FAERS Safety Report 9529456 (Version 1)
Quarter: 2013Q3

REPORT INFORMATION
  Report Type: Spontaneous
  Country: US (occurrence: US)
  Receive Date: 20130917
  Receipt Date: 20130917
  Transmission Date: 20140515
  Serious: No
  Sender: FDA-Public Use
  Company Number: US-TEVA-432162USA

PATIENT
  Age: 27 Year
  Sex: Female
  Weight: 63.56 kg

DRUGS (3)
  1. PARAGARD 380A [Suspect]
     Indication: CONTRACEPTION
     Route: 015
     Dates: start: 20130802, end: 20130910
  2. CELEBREX [Concomitant]
     Indication: INFLAMMATION
  3. PROGESTINE [Concomitant]
     Indication: HORMONE REPLACEMENT THERAPY

REACTIONS (5)
  - Device expulsion [Recovered/Resolved]
  - Pain [Recovered/Resolved]
  - Muscle spasms [Recovered/Resolved]
  - Pelvic pain [Not Recovered/Not Resolved]
  - Dyspareunia [Recovered/Resolved]
